FAERS Safety Report 25019442 (Version 1)
Quarter: 2025Q1

REPORT INFORMATION
  Report Type: Spontaneous
  Country: NZ (occurrence: NZ)
  Receive Date: 20250227
  Receipt Date: 20250227
  Transmission Date: 20250408
  Serious: Yes (Other)
  Sender: NOVARTIS
  Company Number: NZ-002147023-NVSC2025NZ033177

PATIENT
  Age: 51 Year
  Sex: Female

DRUGS (8)
  1. BETAMETHASONE\CALCIPOTRIENE [Suspect]
     Active Substance: BETAMETHASONE\CALCIPOTRIENE
     Indication: Psoriasis
     Route: 065
  2. METHOTREXATE [Suspect]
     Active Substance: METHOTREXATE
     Indication: Product used for unknown indication
     Route: 065
     Dates: end: 202309
  3. METHOTREXATE [Suspect]
     Active Substance: METHOTREXATE
     Route: 058
  4. ADALIMUMAB [Suspect]
     Active Substance: ADALIMUMAB
     Indication: Product used for unknown indication
     Route: 065
  5. COSENTYX [Suspect]
     Active Substance: SECUKINUMAB
     Indication: Product used for unknown indication
     Route: 065
  6. PREDNISONE [Concomitant]
     Active Substance: PREDNISONE
     Indication: Inflammation
     Route: 065
     Dates: start: 202208
  7. LEFLUNOMIDE [Concomitant]
     Active Substance: LEFLUNOMIDE
     Indication: Product used for unknown indication
     Dosage: 20 MG, QD
     Route: 065
     Dates: start: 202211, end: 202406
  8. METHYLPREDNISOLONE [Concomitant]
     Active Substance: METHYLPREDNISOLONE
     Route: 065
     Dates: start: 202211

REACTIONS (16)
  - Polyarthritis [Unknown]
  - Rash [Unknown]
  - Food intolerance [Unknown]
  - Drug ineffective [Unknown]
  - Synovitis [Unknown]
  - Nausea [Unknown]
  - Diarrhoea [Unknown]
  - Onycholysis [Unknown]
  - Mouth ulceration [Unknown]
  - Depressed mood [Unknown]
  - COVID-19 [Unknown]
  - Enthesopathy [Unknown]
  - Weight decreased [Unknown]
  - Psoriasis [Unknown]
  - Nausea [Unknown]
  - Diarrhoea [Unknown]

NARRATIVE: CASE EVENT DATE: 20220501
